FAERS Safety Report 10329488 (Version 1)
Quarter: 2014Q3

REPORT INFORMATION
  Report Type: Spontaneous
  Country: FR (occurrence: None)
  Receive Date: 20140717
  Receipt Date: 20140717
  Transmission Date: 20150326
  Serious: Yes (Other)
  Sender: FDA-Public Use
  Company Number: 2014FR00698

PATIENT

DRUGS (5)
  1. LENOGRASTIM (LENOGRASTIM) [Concomitant]
     Active Substance: LENOGRASTIM
  2. GRANULOCYTE COLONY-STIMULATING FACTOR (GRANULOCYTE COLONY-STIMULATING FACTOR) [Concomitant]
  3. CISPLATIN (CISPLATIN) [Suspect]
     Active Substance: CISPLATIN
     Indication: ADENOCARCINOMA GASTRIC
     Dosage: 30 MG/M2, WEEKLY FOR EIGHT CYCLES, INTRAVENOUS
     Route: 042
  4. PACLITAXEL. [Suspect]
     Active Substance: PACLITAXEL
     Indication: ADENOCARCINOMA GASTRIC
     Dosage: 80 MG/M2, WEEKLY FOR EIGHT CYCLES
  5. EPIRUBICIN (EPIRUBICIN HYDROCHLORIDE) INJECTION [Suspect]
     Active Substance: EPIRUBICIN
     Indication: ADENOCARCINOMA GASTRIC
     Dosage: 50 MG/M2, WEEKLY FOR EIGHT CYCLES

REACTIONS (1)
  - Renal failure acute [None]
